FAERS Safety Report 8797760 (Version 1)
Quarter: 2012Q4

REPORT INFORMATION
  Report Type: 
  Country: JP (occurrence: JP)
  Receive Date: 20120919
  Receipt Date: 20120919
  Transmission Date: 20130627
  Serious: Yes (Other)
  Sender: FDA-Public Use
  Company Number: JP-ROCHE-1119983

PATIENT
  Age: 8 None
  Sex: Male

DRUGS (6)
  1. HERCEPTIN [Suspect]
     Indication: GASTRIC CANCER
     Dosage: Dosage is uncertain.
     Route: 041
  2. HERCEPTIN [Suspect]
     Dosage: Dosage is uncertain.
     Route: 041
  3. XELODA [Suspect]
     Indication: GASTRIC CANCER
     Dosage: Dosage is uncertain.
     Route: 048
  4. XELODA [Suspect]
     Dosage: Dosage is uncertain.
     Route: 048
  5. CISPLATIN [Suspect]
     Indication: GASTRIC CANCER
     Dosage: Dosage is uncertain.
     Route: 041
  6. CISPLATIN [Suspect]
     Dosage: Dosage is uncertain.
     Route: 041

REACTIONS (1)
  - Bone marrow failure [Recovered/Resolved]
